FAERS Safety Report 15526504 (Version 1)
Quarter: 2018Q4

REPORT INFORMATION
  Report Type: Spontaneous
  Country: US (occurrence: US)
  Receive Date: 20181018
  Receipt Date: 20181018
  Transmission Date: 20190205
  Serious: No
  Sender: FDA-Public Use
  Company Number: US-LANNETT COMPANY, INC.-US-2017LAN001161

PATIENT

DRUGS (1)
  1. LEVOTHYROXINE SODIUM. [Suspect]
     Active Substance: LEVOTHYROXINE SODIUM
     Indication: THYROID DISORDER
     Dosage: 25 ?G, UNK
     Route: 065
     Dates: start: 20170904, end: 20171020

REACTIONS (14)
  - Diabetes mellitus inadequate control [Unknown]
  - Hair disorder [Unknown]
  - Insomnia [Unknown]
  - Blood thyroid stimulating hormone increased [Unknown]
  - Palpitations [Unknown]
  - Disturbance in attention [Unknown]
  - Dizziness [Unknown]
  - Decreased appetite [Unknown]
  - Drug ineffective [Unknown]
  - Feeding disorder [Unknown]
  - Anxiety [Unknown]
  - Liver disorder [Unknown]
  - Feeling abnormal [Unknown]
  - Mental impairment [Unknown]

NARRATIVE: CASE EVENT DATE: 2017
